FAERS Safety Report 5291920-7 (Version None)
Quarter: 2007Q2

REPORT INFORMATION
  Report Type: 
  Country: None (occurrence: None)
  Receive Date: 20070403
  Receipt Date: 20070323
  Transmission Date: 20071010
  Serious: Yes (Other)
  Sender: FDA-Public Use
  Company Number: 430008M07DEU

PATIENT
  Sex: 0

DRUGS (1)
  1. NOVANTRONE [Suspect]

REACTIONS (2)
  - RENAL CELL CARCINOMA STAGE UNSPECIFIED [None]
  - SMALL CELL CARCINOMA [None]
